FAERS Safety Report 4528341-8 (Version None)
Quarter: 2004Q4

REPORT INFORMATION
  Report Type: 
  Country: None (occurrence: None)
  Receive Date: 20041130
  Receipt Date: 20040512
  Transmission Date: 20050328
  Serious: Yes (Hospitalization, Disabling, Other)
  Sender: FDA-Public Use
  Company Number: WAES 0405USA00946

PATIENT
  Age: 88 Year
  Sex: Female
  Weight: 49.4421 kg

DRUGS (1)
  1. FOSAMAX [Suspect]
     Indication: OSTEOPOROSIS
     Dosage: 70 MG/WKY/PO
     Route: 048
     Dates: start: 20021201, end: 20040401

REACTIONS (2)
  - OESOPHAGEAL ULCER [None]
  - OESOPHAGITIS [None]
